FAERS Safety Report 4370643-2 (Version None)
Quarter: 2004Q2

REPORT INFORMATION
  Report Type: 
  Country: None (occurrence: None)
  Receive Date: 20040525
  Receipt Date: 20040512
  Transmission Date: 20050107
  Serious: Yes (Other)
  Sender: FDA-Public Use
  Company Number: GB-JNJFOC-20040503080

PATIENT
  Sex: Female

DRUGS (1)
  1. HALDOL [Suspect]
     Dosage: 0.5 ML; 5 ML, 1 IN 1 TOTAL

REACTIONS (2)
  - ACCIDENTAL OVERDOSE [None]
  - CONVULSION [None]
